FAERS Safety Report 10803349 (Version 2)
Quarter: 2015Q1

REPORT INFORMATION
  Report Type: Spontaneous
  Country: FR (occurrence: TR)
  Receive Date: 20150217
  Receipt Date: 20150327
  Transmission Date: 20150721
  Serious: Yes (Hospitalization)
  Sender: FDA-Public Use
  Company Number: TR-FRI-1000074498

PATIENT
  Age: 62 Year
  Sex: Female

DRUGS (5)
  1. MILNACIPRAN [Suspect]
     Active Substance: MILNACIPRAN
     Indication: PRODUCT USED FOR UNKNOWN INDICATION
     Route: 065
  2. PALBOCICLIB [Suspect]
     Active Substance: PALBOCICLIB
     Indication: PRODUCT USED FOR UNKNOWN INDICATION
     Dates: end: 20150106
  3. LISINOPRIL. [Concomitant]
     Active Substance: LISINOPRIL
  4. LETROZOL [Concomitant]
     Active Substance: LETROZOLE
  5. ZOLEDRONATE [Suspect]
     Active Substance: ZOLEDRONIC ACID
     Indication: PRODUCT USED FOR UNKNOWN INDICATION

REACTIONS (7)
  - Electrocardiogram QT prolonged [Recovering/Resolving]
  - Anaemia [Recovered/Resolved]
  - Nausea [Unknown]
  - Liver function test abnormal [Unknown]
  - Low density lipoprotein increased [Unknown]
  - Bone marrow failure [Unknown]
  - Blood glucose increased [Unknown]

NARRATIVE: CASE EVENT DATE: 2014
